FAERS Safety Report 11348080 (Version 1)
Quarter: 2015Q3

REPORT INFORMATION
  Report Type: Spontaneous
  Country: US (occurrence: US)
  Receive Date: 20150803
  Receipt Date: 20150803
  Transmission Date: 20151125
  Serious: No
  Sender: FDA-Public Use
  Company Number: US-ELI_LILLY_AND_COMPANY-US200910007325

PATIENT
  Age: 52 Year
  Sex: Female

DRUGS (7)
  1. ZOLOFT [Concomitant]
     Active Substance: SERTRALINE HYDROCHLORIDE
     Dosage: 50 MG, QD
     Dates: start: 20070425
  2. CITALOPRAM [Concomitant]
     Active Substance: CITALOPRAM HYDROBROMIDE
  3. ZYPREXA [Suspect]
     Active Substance: OLANZAPINE
     Dosage: 15 MG, EACH EVENING
     Dates: end: 20070423
  4. ABILIFY [Concomitant]
     Active Substance: ARIPIPRAZOLE
  5. DEPAKOTE [Concomitant]
     Active Substance: DIVALPROEX SODIUM
  6. ZYPREXA [Suspect]
     Active Substance: OLANZAPINE
     Dosage: 1 DF, UNKNOWN
  7. KLONOPIN [Concomitant]
     Active Substance: CLONAZEPAM
     Dosage: 1 MG, BID
     Dates: start: 20070423

REACTIONS (10)
  - Pyrexia [Unknown]
  - Drug dose omission [Unknown]
  - Dehydration [Unknown]
  - Tachycardia [Unknown]
  - Feeling abnormal [Unknown]
  - Bacterial vaginosis [Unknown]
  - Type 2 diabetes mellitus [Unknown]
  - Cervical radiculopathy [Unknown]
  - Hypertension [Unknown]
  - Neuropathy peripheral [Unknown]

NARRATIVE: CASE EVENT DATE: 20070424
